FAERS Safety Report 6738932-1 (Version None)
Quarter: 2010Q2

REPORT INFORMATION
  Report Type: 
  Country: None (occurrence: None)
  Receive Date: 20100524
  Receipt Date: 20100514
  Transmission Date: 20101027
  Serious: Yes (Hospitalization)
  Sender: FDA-Public Use
  Company Number: JP-AMGEN-US406697

PATIENT
  Sex: Female
  Weight: 49 kg

DRUGS (5)
  1. ENBREL [Suspect]
     Indication: RHEUMATOID ARTHRITIS
     Route: 058
     Dates: start: 20050801, end: 20061101
  2. ENBREL [Suspect]
     Route: 058
     Dates: start: 20061101, end: 20090901
  3. ENBREL [Suspect]
     Route: 058
     Dates: start: 20090901, end: 20100211
  4. ADALAT - SLOW RELEASE [Concomitant]
     Route: 048
     Dates: end: 20100408
  5. LASIX [Concomitant]
     Route: 048
     Dates: end: 20100408

REACTIONS (5)
  - GLOMERULONEPHRITIS MEMBRANOPROLIFERATIVE [None]
  - LUPUS NEPHRITIS [None]
  - NEPHROTIC SYNDROME [None]
  - PHOTOSENSITIVITY REACTION [None]
  - SYSTEMIC LUPUS ERYTHEMATOSUS [None]
